FAERS Safety Report 9968408 (Version 1)
Quarter: 2014Q1

REPORT INFORMATION
  Report Type: Report from Study
  Country: US (occurrence: US)
  Receive Date: 20140306
  Receipt Date: 20140306
  Transmission Date: 20141002
  Serious: No
  Sender: FDA-Public Use
  Company Number: US-ABBVIE-13P-163-1143049-00

PATIENT
  Age: 74 Year
  Sex: Female

DRUGS (17)
  1. HUMIRA [Suspect]
     Indication: RHEUMATOID ARTHRITIS
     Dates: start: 201301
  2. LASIX [Concomitant]
     Indication: FLUID RETENTION
  3. ALDACTONE [Concomitant]
     Indication: HYPERTENSION
     Dosage: 25 MG DAILY
  4. BUDESONIDE [Concomitant]
     Indication: BRONCHITIS CHRONIC
  5. PERFORMIST [Concomitant]
     Indication: BRONCHITIS CHRONIC
  6. SYNTHROID [Concomitant]
     Indication: HYPOTHYROIDISM
     Dosage: 125 MCG DAILY
  7. LIPITOR [Concomitant]
     Indication: BLOOD CHOLESTEROL
  8. ZETIA [Concomitant]
     Indication: BLOOD CHOLESTEROL
  9. MUCINEX [Concomitant]
     Indication: BRONCHITIS CHRONIC
  10. ZEBETA [Concomitant]
     Indication: CARDIOVASCULAR EVENT PROPHYLAXIS
     Dosage: 2.5 MG DAILY
  11. ASPIRIN [Concomitant]
     Indication: CARDIOVASCULAR EVENT PROPHYLAXIS
     Dosage: 81 MG DAILY
  12. PLAVIX [Concomitant]
     Indication: ANTICOAGULANT THERAPY
     Dosage: 75 MG DAILY
  13. BENADRYL [Concomitant]
     Indication: INSOMNIA
     Dosage: EVERY EVENING
  14. FISH OIL [Concomitant]
     Indication: CARDIOVASCULAR EVENT PROPHYLAXIS
     Dosage: 4000 MG DAILY
  15. FISH OIL [Concomitant]
     Indication: ARTHRITIS
  16. MUTLTIVITAMIN [Concomitant]
     Indication: VITAMIN SUPPLEMENTATION
     Dosage: DAILY
  17. GLUCOSAMINE/CHONDRITIN [Concomitant]
     Indication: RHEUMATOID ARTHRITIS

REACTIONS (4)
  - Sleep disorder [Not Recovered/Not Resolved]
  - Upper respiratory tract infection [Unknown]
  - Pain [Not Recovered/Not Resolved]
  - Bronchitis [Unknown]
